FAERS Safety Report 22342889 (Version 1)
Quarter: 2023Q2

REPORT INFORMATION
  Report Type: Spontaneous
  Country: US (occurrence: US)
  Receive Date: 20230519
  Receipt Date: 20230519
  Transmission Date: 20230721
  Serious: Yes (Hospitalization, Other)
  Sender: FDA-Public Use
  Company Number: US-ABBVIE-4771777

PATIENT
  Sex: Male

DRUGS (3)
  1. SYNTHROID [Suspect]
     Active Substance: LEVOTHYROXINE SODIUM
     Indication: Product used for unknown indication
     Route: 048
  2. NP THYROID [Suspect]
     Active Substance: LEVOTHYROXINE\LIOTHYRONINE
     Indication: Product used for unknown indication
     Route: 065
  3. LACTULOSE [Concomitant]
     Active Substance: LACTULOSE
     Indication: Product used for unknown indication

REACTIONS (21)
  - Syncope [Unknown]
  - Blood thyroid stimulating hormone increased [Unknown]
  - Gait disturbance [Unknown]
  - Hallucinations, mixed [Unknown]
  - Unevaluable event [Unknown]
  - Hepatic enzyme increased [Unknown]
  - Slow response to stimuli [Unknown]
  - Loss of personal independence in daily activities [Unknown]
  - Tremor [Recovered/Resolved]
  - Psychotic disorder [Unknown]
  - Hypersomnia [Unknown]
  - Rash [Unknown]
  - Ammonia increased [Unknown]
  - Dementia [Unknown]
  - Constipation [Unknown]
  - Scar [Unknown]
  - Loss of consciousness [Unknown]
  - Confusional state [Recovered/Resolved]
  - Blood calcium increased [Recovering/Resolving]
  - Mental disorder [Unknown]
  - Delirium [Recovered/Resolved]
